FAERS Safety Report 25769928 (Version 1)
Quarter: 2025Q3

REPORT INFORMATION
  Report Type: Spontaneous
  Country: TW (occurrence: TW)
  Receive Date: 20250907
  Receipt Date: 20250907
  Transmission Date: 20251021
  Serious: Yes (Hospitalization, Other)
  Sender: SANOFI AVENTIS
  Company Number: TW-SA-2025SA263675

PATIENT
  Age: 81 Year
  Sex: Female
  Weight: 71 kg

DRUGS (3)
  1. MULTAQ [Suspect]
     Active Substance: DRONEDARONE
     Indication: Arrhythmia
     Route: 048
  2. FOSFOMYCIN [Suspect]
     Active Substance: FOSFOMYCIN
     Indication: Staphylococcal bacteraemia
     Dosage: 2 G, Q8H
     Route: 041
     Dates: start: 20250627, end: 20250710
  3. CUBICIN [Suspect]
     Active Substance: DAPTOMYCIN
     Indication: Staphylococcal bacteraemia
     Dosage: 500 MG, QOD
     Route: 041
     Dates: start: 20250623, end: 20250710

REACTIONS (1)
  - Hepatotoxicity [Recovered/Resolved]

NARRATIVE: CASE EVENT DATE: 20250714
